FAERS Safety Report 4692149-3 (Version None)
Quarter: 2005Q2

REPORT INFORMATION
  Report Type: 
  Country: None (occurrence: None)
  Receive Date: 20050614
  Receipt Date: 20050601
  Transmission Date: 20051028
  Serious: Yes (Death)
  Sender: FDA-Public Use
  Company Number: 2005-01193

PATIENT
  Age: 65 Year
  Sex: Male
  Weight: 87.7 kg

DRUGS (9)
  1. INTEGRILIN [Suspect]
     Indication: CORONARY ANGIOPLASTY
     Dosage: 180.00 UG/KG, IV BOLUS
     Route: 040
     Dates: start: 20050218, end: 20050218
  2. ASPIRIN [Concomitant]
  3. PLAVIX [Concomitant]
  4. LOVENOX (HEPARIN-FRACTIO, SODIUM SALT) [Concomitant]
  5. NITROGLYCERIN [Concomitant]
  6. MORPHINE [Concomitant]
  7. LIPITOR [Concomitant]
  8. HEPARIN [Concomitant]
  9. AMINOPHYLLIN [Concomitant]

REACTIONS (9)
  - ABNORMAL BEHAVIOUR [None]
  - BRAIN HERNIATION [None]
  - CEREBRAL HAEMORRHAGE [None]
  - DELIRIUM TREMENS [None]
  - DIABETES INSIPIDUS [None]
  - DISSEMINATED INTRAVASCULAR COAGULATION [None]
  - LOSS OF CONSCIOUSNESS [None]
  - PUPIL FIXED [None]
  - SUBDURAL HAEMATOMA [None]
